FAERS Safety Report 8801801 (Version 1)
Quarter: 2012Q4

REPORT INFORMATION
  Report Type: 
  Country: US (occurrence: US)
  Receive Date: 20120921
  Receipt Date: 20120921
  Transmission Date: 20130627
  Serious: Yes (Other)
  Sender: FDA-Public Use
  Company Number: US-PFIZER INC-2012232985

PATIENT
  Age: 53 Year
  Sex: Female
  Weight: 49 kg

DRUGS (2)
  1. EFFEXOR XR [Suspect]
     Indication: DEPRESSION
     Dosage: 150 mg, 2x/day
     Route: 048
     Dates: end: 201208
  2. CLARITIN-D [Concomitant]
     Indication: HYPERSENSITIVITY
     Dosage: UNK

REACTIONS (13)
  - Withdrawal syndrome [Unknown]
  - Weight increased [Unknown]
  - Nightmare [Unknown]
  - Alopecia [Unknown]
  - Nasopharyngitis [Unknown]
  - Pain [Unknown]
  - Body temperature increased [Unknown]
  - Influenza like illness [Unknown]
  - Fatigue [Unknown]
  - Somnolence [Unknown]
  - Nausea [Unknown]
  - Diarrhoea [Unknown]
  - Vomiting [Unknown]
